APPROVED DRUG PRODUCT: CAVERJECT IMPULSE
Active Ingredient: ALPROSTADIL
Strength: 0.02MG/VIAL
Dosage Form/Route: INJECTABLE;INJECTION
Application: N021212 | Product #002
Applicant: PFIZER INC
Approved: Jun 11, 2002 | RLD: No | RS: No | Type: RX